FAERS Safety Report 5363517-1 (Version None)
Quarter: 2007Q2

REPORT INFORMATION
  Report Type: 
  Country: None (occurrence: None)
  Receive Date: 20070620
  Receipt Date: 20060720
  Transmission Date: 20071010
  Serious: No
  Sender: FDA-Public Use
  Company Number: US-BRISTOL-MYERS SQUIBB COMPANY-13448964

PATIENT
  Age: 70 Year
  Sex: Male
  Weight: 116 kg

DRUGS (6)
  1. GLYBURIDE AND METFORMIN HCL [Suspect]
     Dosage: GLYBURIDE 5 MG/METFORMIN 500 MG
  2. FOSINOPRIL SODIUM [Suspect]
  3. TERAZOSIN HCL [Concomitant]
  4. ROSIGLITAZONE MALEATE [Concomitant]
  5. FELODIPINE [Concomitant]
  6. NAPROSYN [Concomitant]

REACTIONS (1)
  - CONSTIPATION [None]
